FAERS Safety Report 8850949 (Version 1)
Quarter: 2012Q4

REPORT INFORMATION
  Report Type: 
  Country: CA (occurrence: CA)
  Receive Date: 20121019
  Receipt Date: 20121019
  Transmission Date: 20130627
  Serious: Yes (Hospitalization)
  Sender: FDA-Public Use
  Company Number: CA-NOVOPROD-361672

PATIENT
  Age: 10 Year
  Sex: Male

DRUGS (2)
  1. NOVOLIN [Suspect]
     Indication: TYPE 1 DIABETES MELLITUS
     Dosage: 0.75 units/kg/day
  2. HUMALOG [Concomitant]
     Indication: TYPE 1 DIABETES MELLITUS
     Dosage: 0.75 units/kg/day

REACTIONS (2)
  - Hemiplegia [Recovered/Resolved]
  - Hypoglycaemia [Recovered/Resolved]
